FAERS Safety Report 15143468 (Version 1)
Quarter: 2018Q3

REPORT INFORMATION
  Report Type: Report from Study
  Country: None (occurrence: US)
  Receive Date: 20180713
  Receipt Date: 20180713
  Transmission Date: 20181010
  Serious: Yes (Hospitalization)
  Sender: FDA-Public Use
  Company Number: US-ABBVIE-17K-163-2052909-00

PATIENT
  Sex: Male

DRUGS (1)
  1. HUMIRA [Suspect]
     Active Substance: ADALIMUMAB
     Indication: COLITIS ULCERATIVE
     Route: 058

REACTIONS (8)
  - Anal incontinence [Unknown]
  - Rectal haemorrhage [Not Recovered/Not Resolved]
  - Constipation [Recovered/Resolved]
  - Gastric disorder [Unknown]
  - Faeces discoloured [Unknown]
  - Constipation [Unknown]
  - Gastrointestinal pain [Unknown]
  - Gastrointestinal pain [Not Recovered/Not Resolved]
